FAERS Safety Report 19377462 (Version 8)
Quarter: 2021Q4

REPORT INFORMATION
  Report Type: Report from Study
  Country: RU (occurrence: None)
  Receive Date: 20210604
  Receipt Date: 20211112
  Transmission Date: 20220303
  Serious: Yes (Life-Threatening, Hospitalization)
  Sender: FDA-Public Use
  Company Number: RU-EISAI MEDICAL RESEARCH-EC-2021-093909

PATIENT
  Age: 4 Year
  Sex: Male
  Weight: 15.1 kg

DRUGS (9)
  1. LENVATINIB [Suspect]
     Active Substance: LENVATINIB
     Indication: Neuroblastoma
     Route: 048
     Dates: start: 20210212, end: 20210528
  2. BISEPTOL [Concomitant]
     Active Substance: SULFAMETHOXAZOLE\TRIMETHOPRIM
     Dates: start: 201904
  3. PANCRELIPASE [Concomitant]
     Active Substance: PANCRELIPASE
     Dates: start: 20190727, end: 20210529
  4. ESPUMISAN [SIMETICONE] [Concomitant]
     Dates: start: 202011, end: 20210529
  5. SMECTA [Concomitant]
     Active Substance: MONTMORILLONITE
     Dates: start: 202011, end: 20210529
  6. EUTHYROX [Concomitant]
     Active Substance: LEVOTHYROXINE SODIUM
     Dates: start: 20210407, end: 20210526
  7. EUTHYROX [Concomitant]
     Active Substance: LEVOTHYROXINE SODIUM
     Dates: start: 20210527
  8. AQUADETRIM [Concomitant]
     Dates: start: 20210407
  9. WARFARIN [Concomitant]
     Active Substance: WARFARIN
     Dates: start: 20210504, end: 20210528

REACTIONS (1)
  - Acute kidney injury [Recovered/Resolved]

NARRATIVE: CASE EVENT DATE: 20210528
